FAERS Safety Report 4546162-7 (Version None)
Quarter: 2005Q1

REPORT INFORMATION
  Report Type: 
  Country: None (occurrence: None)
  Receive Date: 20050103
  Receipt Date: 20041224
  Transmission Date: 20050727
  Serious: Yes (Hospitalization)
  Sender: FDA-Public Use
  Company Number: 2004AP06424

PATIENT
  Age: 64 Year
  Sex: Female

DRUGS (6)
  1. NOLVADEX [Suspect]
     Indication: BREAST CANCER
     Dosage: 20 MG DAILY PO
     Route: 048
     Dates: start: 20011228, end: 20041016
  2. NOLVADEX [Suspect]
     Indication: BREAST CANCER
     Dosage: 20 MG DAILY PO
     Route: 048
     Dates: start: 20041026, end: 20041220
  3. BASEN [Concomitant]
  4. METFORMIN HCL [Concomitant]
  5. GLUFAST [Concomitant]
  6. ATELEC [Concomitant]

REACTIONS (7)
  - ARRHYTHMIA [None]
  - CEREBRAL INFARCTION [None]
  - DIABETES MELLITUS INADEQUATE CONTROL [None]
  - HYPOAESTHESIA [None]
  - THIRST [None]
  - THROMBOSIS [None]
  - TREATMENT NONCOMPLIANCE [None]
